FAERS Safety Report 18455059 (Version 1)
Quarter: 2020Q4

REPORT INFORMATION
  Report Type: Spontaneous
  Country: US (occurrence: US)
  Receive Date: 20201102
  Receipt Date: 20201102
  Transmission Date: 20210114
  Serious: No
  Sender: FDA-Public Use
  Company Number: US-BEH-2020123924

PATIENT
  Sex: Female

DRUGS (3)
  1. HIZENTRA [Suspect]
     Active Substance: HUMAN IMMUNOGLOBULIN G
     Indication: AUTONOMIC NERVOUS SYSTEM IMBALANCE
     Dosage: 1 GRAM, BIW
     Route: 058
     Dates: start: 201907
  2. HIZENTRA [Suspect]
     Active Substance: HUMAN IMMUNOGLOBULIN G
     Indication: CHRONIC INFLAMMATORY DEMYELINATING POLYRADICULONEUROPATHY
     Dosage: 20 GRAM, BIW
     Route: 058
     Dates: start: 201907
  3. HIZENTRA [Suspect]
     Active Substance: HUMAN IMMUNOGLOBULIN G
     Indication: DIARRHOEA
     Dosage: 8 GRAM, BIW
     Route: 058
     Dates: start: 201907

REACTIONS (4)
  - Hyperhidrosis [Unknown]
  - Injection site extravasation [Unknown]
  - No adverse event [Unknown]
  - Product use in unapproved indication [Unknown]
